FAERS Safety Report 4880637-6 (Version None)
Quarter: 2006Q1

REPORT INFORMATION
  Report Type: 
  Country: None (occurrence: None)
  Receive Date: 20060113
  Receipt Date: 20051005
  Transmission Date: 20060701
  Serious: Yes (Death, Hospitalization, Other)
  Sender: FDA-Public Use
  Company Number: US-MERCK-0510USA04607

PATIENT
  Age: 87 Year
  Sex: Female
  Weight: 65 kg

DRUGS (12)
  1. VIOXX [Suspect]
     Indication: ARTHRALGIA
     Route: 048
     Dates: start: 19990101, end: 20001212
  2. LANOXIN [Concomitant]
     Route: 065
  3. HUMULIN [Concomitant]
     Route: 058
  4. ZANTAC [Concomitant]
     Route: 065
  5. DEMADEX [Concomitant]
     Route: 065
  6. MICRONASE [Concomitant]
     Route: 065
  7. K-DUR 10 [Concomitant]
     Route: 065
  8. PRECOSE [Concomitant]
     Route: 065
  9. SYNTHROID [Concomitant]
     Route: 065
  10. VERELAN [Concomitant]
     Route: 065
  11. ALLOPURINOL [Concomitant]
     Route: 065
  12. CELEBREX [Suspect]
     Route: 065

REACTIONS (16)
  - ARTERIOSCLEROSIS [None]
  - ATRIOVENTRICULAR BLOCK FIRST DEGREE [None]
  - CARDIAC VALVE SCLEROSIS [None]
  - CEREBRAL ATROPHY [None]
  - CEREBROVASCULAR ACCIDENT [None]
  - DEATH [None]
  - DILATATION ATRIAL [None]
  - GASTRITIS [None]
  - HAEMATOCHEZIA [None]
  - HYPERTENSION [None]
  - MITRAL VALVE INCOMPETENCE [None]
  - MYOCARDIAL INFARCTION [None]
  - SEBORRHOEIC DERMATITIS [None]
  - TRICUSPID VALVE INCOMPETENCE [None]
  - VENTRICULAR HYPERTROPHY [None]
  - XERODERMA [None]
